FAERS Safety Report 9846100 (Version 1)
Quarter: 2014Q1

REPORT INFORMATION
  Report Type: Spontaneous
  Country: GB (occurrence: GB)
  Receive Date: 20140127
  Receipt Date: 20140127
  Transmission Date: 20141002
  Serious: Yes (Death, Hospitalization, Other)
  Sender: FDA-Public Use
  Company Number: GB-B.I. PHARMACEUTICALS,INC./RIDGEFIELD-2014-BI-03420UK

PATIENT
  Age: 80 Year
  Sex: Female
  Weight: 56 kg

DRUGS (1)
  1. DULCOEASE PINK [Suspect]
     Indication: CARDIAC FAILURE
     Dosage: 1 ANZ
     Route: 048

REACTIONS (3)
  - Death [Fatal]
  - Drug prescribing error [Fatal]
  - Vomiting [Fatal]
